FAERS Safety Report 6366661-5 (Version None)
Quarter: 2009Q3

REPORT INFORMATION
  Report Type: 
  Country: None (occurrence: None)
  Receive Date: 20090921
  Receipt Date: 20090908
  Transmission Date: 20100115
  Serious: Yes (Other)
  Sender: FDA-Public Use
  Company Number: US-ELI_LILLY_AND_COMPANY-US200905003089

PATIENT
  Sex: Female
  Weight: 63.492 kg

DRUGS (2)
  1. EVISTA [Suspect]
     Indication: OSTEOPOROSIS
     Dosage: 60 MG, DAILY (1/D)
     Route: 065
     Dates: start: 19940101, end: 20090501
  2. EVISTA [Suspect]
     Dosage: 60 MG, DAILY (1/D)
     Route: 065

REACTIONS (1)
  - BREAST CANCER [None]
